FAERS Safety Report 9163806 (Version 1)
Quarter: 2013Q1

REPORT INFORMATION
  Report Type: Spontaneous
  Country: US (occurrence: US)
  Receive Date: 20130314
  Receipt Date: 20130314
  Transmission Date: 20140127
  Serious: Yes (Other)
  Sender: FDA-Public Use
  Company Number: US-ROCHE-1200254

PATIENT
  Sex: Female

DRUGS (1)
  1. ZELBORAF [Suspect]
     Indication: MALIGNANT MELANOMA
     Route: 065

REACTIONS (9)
  - Metastases to central nervous system [Unknown]
  - Alopecia [Unknown]
  - Rash [Unknown]
  - Photosensitivity reaction [Unknown]
  - Blister [Unknown]
  - Lip swelling [Unknown]
  - Arthralgia [Unknown]
  - Erythema [Unknown]
  - Joint swelling [Unknown]
